FAERS Safety Report 9004780 (Version 1)
Quarter: 2013Q1

REPORT INFORMATION
  Report Type: Spontaneous
  Country: US (occurrence: None)
  Receive Date: 20130107
  Receipt Date: 20130107
  Transmission Date: 20140127
  Serious: Yes (Life-Threatening, Hospitalization)
  Sender: FDA-Public Use
  Company Number: None

PATIENT
  Age: 51 Year
  Sex: 0
  Weight: 88.5 kg

DRUGS (6)
  1. LEVOFLOXACIN [Suspect]
     Indication: PNEUMONIA
     Dosage: 750MG ONCE IV BOLUS
     Route: 040
     Dates: start: 20121230, end: 20121230
  2. PYRIDOATIGMINE [Concomitant]
  3. FAMOTIDINE [Concomitant]
  4. IMMUNE GLOBULIN [Concomitant]
  5. AMLODIPINE [Concomitant]
  6. RAMIPRIL [Concomitant]

REACTIONS (3)
  - Asthenia [None]
  - Condition aggravated [None]
  - Medication error [None]
